FAERS Safety Report 12781248 (Version 2)
Quarter: 2016Q3

REPORT INFORMATION
  Report Type: Report from Study
  Country: BR (occurrence: BR)
  Receive Date: 20160926
  Receipt Date: 20160929
  Transmission Date: 20161109
  Serious: Yes (Hospitalization, Other)
  Sender: FDA-Public Use
  Company Number: PHHY2016BR112792

PATIENT
  Sex: Female
  Weight: 50 kg

DRUGS (4)
  1. AMITRIPTILINA [Concomitant]
     Active Substance: AMITRIPTYLINE HYDROCHLORIDE
     Indication: PRODUCT USED FOR UNKNOWN INDICATION
     Dosage: UNK
     Route: 065
  2. FLUOXETINE [Concomitant]
     Active Substance: FLUOXETINE HYDROCHLORIDE
     Indication: PRODUCT USED FOR UNKNOWN INDICATION
     Dosage: UNK
     Route: 065
  3. HYDREA [Concomitant]
     Active Substance: HYDROXYUREA
     Indication: ANAEMIA
     Dosage: UNK UNK, TWICE A DAY
     Route: 065
  4. EXJADE [Suspect]
     Active Substance: DEFERASIROX
     Indication: SICKLE CELL ANAEMIA
     Dosage: 20 MG/KG, QD (2 TABLETS OF 500 MG ONCE DAILY)
     Route: 048

REACTIONS (29)
  - Abasia [Unknown]
  - Decreased appetite [Unknown]
  - Malaise [Unknown]
  - Body height decreased [Unknown]
  - Headache [Unknown]
  - Pain [Unknown]
  - Ischaemic stroke [Unknown]
  - Serum ferritin increased [Unknown]
  - Cerebrovascular accident [Unknown]
  - Swelling [Unknown]
  - Weight decreased [Unknown]
  - Pallor [Unknown]
  - Exercise tolerance decreased [Unknown]
  - Arthritis [Unknown]
  - Limb asymmetry [Unknown]
  - Haematocrit decreased [Unknown]
  - Anaemia [Unknown]
  - Fatigue [Unknown]
  - Fibromyalgia [Unknown]
  - Pain in extremity [Unknown]
  - Diabetes mellitus [Unknown]
  - Hypokinesia [Unknown]
  - Osteoarthritis [Unknown]
  - Gait disturbance [Unknown]
  - Yellow skin [Unknown]
  - Eye colour change [Unknown]
  - Aphasia [Unknown]
  - Nervousness [Unknown]
  - Asthenia [Unknown]
